FAERS Safety Report 4520713-0 (Version None)
Quarter: 2004Q4

REPORT INFORMATION
  Report Type: 
  Country: None (occurrence: None)
  Receive Date: 20041203
  Receipt Date: 20041103
  Transmission Date: 20050328
  Serious: Yes (Hospitalization)
  Sender: FDA-Public Use
  Company Number: STA-AE-04-MTX-539

PATIENT
  Age: 56 Year
  Sex: Female

DRUGS (2)
  1. RHEUMATREX [Suspect]
     Indication: RHEUMATOID ARTHRITIS
     Dosage: 6 MG 1X PER 1 WK, ORAL
     Route: 048
     Dates: start: 20010806, end: 20040402
  2. REMICADE [Suspect]
     Indication: RHEUMATOID ARTHRITIS
     Dosage: 3 MG/KG 1X PER 1 DAY, INTRAVENOUS
     Route: 042
     Dates: start: 20030923, end: 20030923

REACTIONS (5)
  - C-REACTIVE PROTEIN INCREASED [None]
  - CHILLS [None]
  - INFECTION [None]
  - PYREXIA [None]
  - WHITE BLOOD CELL COUNT INCREASED [None]
